FAERS Safety Report 5779490-8 (Version None)
Quarter: 2008Q2

REPORT INFORMATION
  Report Type: 
  Country: None (occurrence: None)
  Receive Date: 20080619
  Receipt Date: 20080609
  Transmission Date: 20081010
  Serious: Yes (Other)
  Sender: FDA-Public Use
  Company Number: CA-ELI_LILLY_AND_COMPANY-CA200806003086

PATIENT
  Age: 50 Year
  Sex: Female

DRUGS (12)
  1. CYMBALTA [Suspect]
     Dosage: 60 MG, UNK
  2. CELEXA [Concomitant]
     Dosage: 40 D/F, DAILY (1/D)
  3. EFFEXOR [Concomitant]
     Dosage: 112.5 D/F, DAILY (1/D)
  4. PANTOLOC                           /01263201/ [Concomitant]
     Dosage: 40 D/F, DAILY (1/D)
  5. TENORMIN [Concomitant]
     Dosage: 50 D/F, DAILY (1/D)
  6. CLONAZEPAM [Concomitant]
     Dosage: 0.75 MG, 2/D
  7. CLONAZEPAM [Concomitant]
     Dosage: 1 MG, DAILY (1/D)
  8. CLONAZEPAM [Concomitant]
     Dosage: 2 MG, EACH EVENING
  9. LIPITOR [Concomitant]
     Dosage: 20 D/F, DAILY (1/D)
  10. COLACE [Concomitant]
     Dosage: 200 D/F, EACH EVENING
  11. SENOKOT [Concomitant]
     Dosage: 2 D/F, EACH EVENING
  12. ZYPREXA [Concomitant]
     Dosage: 10 MG, AS NEEDED

REACTIONS (1)
  - CHOLECYSTITIS [None]
